FAERS Safety Report 7434425-7 (Version None)
Quarter: 2011Q2

REPORT INFORMATION
  Report Type: 
  Country: None (occurrence: None)
  Receive Date: 20110425
  Receipt Date: 20110420
  Transmission Date: 20111010
  Serious: Yes (Other)
  Sender: FDA-Public Use
  Company Number: US-AMGEN-USASP2011019111

PATIENT
  Sex: Female

DRUGS (3)
  1. NPLATE [Suspect]
     Indication: IDIOPATHIC THROMBOCYTOPENIC PURPURA
     Dates: start: 20100626, end: 20100702
  2. IMMUNOGLOBULINS [Concomitant]
     Dosage: UNK
     Dates: start: 20100622
  3. CORTICOSTEROIDS [Concomitant]
     Dosage: UNK
     Dates: start: 20100617

REACTIONS (2)
  - APLASTIC ANAEMIA [None]
  - DRUG INEFFECTIVE [None]
